FAERS Safety Report 15439281 (Version 1)
Quarter: 2018Q3

REPORT INFORMATION
  Report Type: Spontaneous
  Country: US (occurrence: US)
  Receive Date: 20180924
  Receipt Date: 20180924
  Transmission Date: 20181010
  Serious: No
  Sender: FDA-Public Use
  Company Number: None

PATIENT
  Age: 66 Year
  Sex: Male
  Weight: 103.5 kg

DRUGS (3)
  1. PEROXIE CARE TARTAR CONTROL BAKING SODA AND PEROXIDE [Suspect]
     Active Substance: SODIUM FLUORIDE
     Indication: DENTAL CLEANING
     Dosage: ?          QUANTITY:1 1 INCH;?
     Route: 048
     Dates: start: 20180916, end: 20180917
  2. COZAAR [Concomitant]
     Active Substance: LOSARTAN POTASSIUM
  3. SYNTHROID [Concomitant]
     Active Substance: LEVOTHYROXINE SODIUM

REACTIONS (2)
  - Application site burn [None]
  - Application site swelling [None]

NARRATIVE: CASE EVENT DATE: 20180916
